FAERS Safety Report 4433773-2 (Version None)
Quarter: 2004Q3

REPORT INFORMATION
  Report Type: 
  Country: None (occurrence: None)
  Receive Date: 20040825
  Receipt Date: 20040806
  Transmission Date: 20050211
  Serious: Yes (Other)
  Sender: FDA-Public Use
  Company Number: US_0405103289

PATIENT
  Age: 63 Year
  Sex: Male

DRUGS (15)
  1. FORTEO [Suspect]
     Indication: OSTEOPOROSIS
     Dosage: 20 UG/1 DAY
     Dates: start: 20031201
  2. PREDNISONE [Concomitant]
  3. ADVAIR DISKUS 100/50 [Concomitant]
  4. ALBUTEROL [Concomitant]
  5. FLONASE (FLUCASONE PROPONATE) [Concomitant]
  6. CLARINEX [Concomitant]
  7. CALCITRIOL [Concomitant]
  8. XALATAN [Concomitant]
  9. TRUSOPT [Concomitant]
  10. ALPHAGAN [Concomitant]
  11. VIAGRA [Concomitant]
  12. LORTAB [Concomitant]
  13. ELAVIL [Concomitant]
  14. ACIPHEX [Concomitant]
  15. SPIRIVA [Concomitant]

REACTIONS (14)
  - ARTHRALGIA [None]
  - ASTHMA [None]
  - BRONCHITIS ACUTE [None]
  - CARDIAC VALVE DISEASE [None]
  - CHEST DISCOMFORT [None]
  - DYSPNOEA [None]
  - MEDICAL DEVICE COMPLICATION [None]
  - OEDEMA PERIPHERAL [None]
  - PAIN [None]
  - PHARMACEUTICAL PRODUCT COMPLAINT [None]
  - PULMONARY FUNCTION TEST ABNORMAL [None]
  - PULMONARY HYPERTENSION [None]
  - TREATMENT NONCOMPLIANCE [None]
  - WEIGHT INCREASED [None]
